FAERS Safety Report 5166776-3 (Version None)
Quarter: 2006Q4

REPORT INFORMATION
  Report Type: 
  Country: None (occurrence: None)
  Receive Date: 20061204
  Receipt Date: 20061204
  Transmission Date: 20070319
  Serious: No
  Sender: FDA-Public Use
  Company Number: None

PATIENT
  Age: 52 Year
  Sex: Female
  Weight: 68.0396 kg

DRUGS (1)
  1. GENTAMICIN [Suspect]
     Indication: INFECTION
     Dosage: IV
     Route: 042
     Dates: start: 20061009, end: 20061106

REACTIONS (2)
  - DRUG TOXICITY [None]
  - OSCILLOPSIA [None]
